FAERS Safety Report 15555439 (Version 1)
Quarter: 2018Q4

REPORT INFORMATION
  Report Type: Spontaneous
  Country: US (occurrence: US)
  Receive Date: 20181026
  Receipt Date: 20181026
  Transmission Date: 20190205
  Serious: Yes (Other)
  Sender: FDA-Public Use
  Company Number: US-PFIZER INC-2018435752

PATIENT
  Age: 73 Year
  Sex: Female
  Weight: 37.29 kg

DRUGS (3)
  1. GABAPENTIN. [Suspect]
     Active Substance: GABAPENTIN
     Indication: SCIATICA
     Dosage: UNK, 3X/DAY
     Route: 048
     Dates: start: 20180728
  2. GABAPENTIN. [Interacting]
     Active Substance: GABAPENTIN
     Indication: BACK INJURY
  3. LOSARTAN. [Concomitant]
     Active Substance: LOSARTAN
     Indication: BLOOD PRESSURE ABNORMAL
     Dosage: 25 MG, 2X/DAY
     Route: 048

REACTIONS (12)
  - Cardiac disorder [Unknown]
  - Burning sensation [Recovering/Resolving]
  - Blood urine [Recovered/Resolved]
  - Drug effective for unapproved indication [Unknown]
  - Intentional product misuse [Unknown]
  - Renal haemorrhage [Unknown]
  - Nerve injury [Unknown]
  - Insomnia [Unknown]
  - Atrial fibrillation [Unknown]
  - Pain [Unknown]
  - Panic attack [Recovering/Resolving]
  - Drug interaction [Unknown]
